FAERS Safety Report 25201278 (Version 1)
Quarter: 2025Q2

REPORT INFORMATION
  Report Type: Spontaneous
  Country: ES (occurrence: ES)
  Receive Date: 20250416
  Receipt Date: 20250416
  Transmission Date: 20250716
  Serious: Yes (Hospitalization, Other)
  Sender: UNITED THERAPEUTICS
  Company Number: ES-UNITED THERAPEUTICS-UNT-2025-011777

PATIENT
  Age: 72 Year

DRUGS (4)
  1. REMODULIN [Suspect]
     Active Substance: TREPROSTINIL
     Indication: Heritable pulmonary arterial hypertension
  2. REMODULIN [Suspect]
     Active Substance: TREPROSTINIL
  3. SILDENAFIL [Concomitant]
     Active Substance: SILDENAFIL
     Indication: Heritable pulmonary arterial hypertension
  4. AMBRISENTAN [Concomitant]
     Active Substance: AMBRISENTAN
     Indication: Product used for unknown indication

REACTIONS (13)
  - Cardiac failure acute [Unknown]
  - Pickwickian syndrome [Unknown]
  - Chronic kidney disease [Unknown]
  - Hypertension [Unknown]
  - Dyslipidaemia [Unknown]
  - Obesity [Unknown]
  - Obstructive sleep apnoea syndrome [Unknown]
  - Restrictive pulmonary disease [Unknown]
  - Dilatation atrial [Unknown]
  - Left ventricular dysfunction [Unknown]
  - Right ventricular dilatation [Unknown]
  - Haemodynamic instability [Unknown]
  - Right atrial pressure increased [Unknown]
